FAERS Safety Report 14776909 (Version 4)
Quarter: 2018Q2

REPORT INFORMATION
  Report Type: Report from Study
  Country: None (occurrence: BE)
  Receive Date: 20180419
  Receipt Date: 20180508
  Transmission Date: 20180711
  Serious: Yes (Other)
  Sender: FDA-Public Use
  Company Number: BE-ABBVIE-18K-013-2322655-00

PATIENT
  Age: 81 Year
  Sex: Female

DRUGS (3)
  1. DUODOPA [Suspect]
     Active Substance: CARBIDOPA\LEVODOPA
     Indication: PARKINSON^S DISEASE
     Dosage: MD=11ML; CD=2.1ML/HR DURING 16HRS;ED=2ML
     Route: 050
     Dates: start: 20180327, end: 20180409
  2. DUODOPA [Suspect]
     Active Substance: CARBIDOPA\LEVODOPA
     Dosage: MD=13ML; CD=2.7ML/HR DURING 16HRS;ED=2ML
     Route: 050
     Dates: start: 20180409, end: 20180427
  3. DUODOPA [Suspect]
     Active Substance: CARBIDOPA\LEVODOPA
     Dosage: MD=13ML, CD=2.9ML/HR DURING 16HRS,  ED=2ML
     Route: 050
     Dates: start: 20180427

REACTIONS (7)
  - Procedural pain [Unknown]
  - On and off phenomenon [Unknown]
  - Flatulence [Not Recovered/Not Resolved]
  - Device issue [Recovered/Resolved]
  - Asthenia [Unknown]
  - Nausea [Unknown]
  - Drug effect variable [Unknown]

NARRATIVE: CASE EVENT DATE: 2018
